FAERS Safety Report 10272393 (Version 1)
Quarter: 2014Q2

REPORT INFORMATION
  Report Type: Spontaneous
  Country: US (occurrence: None)
  Receive Date: 20140630
  Receipt Date: 20140630
  Transmission Date: 20141212
  Serious: No
  Sender: FDA-Public Use
  Company Number: None

PATIENT
  Age: 67 Year
  Sex: Male

DRUGS (1)
  1. CRESTOR 7.5 MG [Suspect]
     Indication: BLOOD CHOLESTEROL INCREASED
     Dosage: 1 + 1/2 PILL, ONCE DAILY

REACTIONS (1)
  - Amnesia [None]
